FAERS Safety Report 4659133-7 (Version None)
Quarter: 2005Q2

REPORT INFORMATION
  Report Type: 
  Country: None (occurrence: None)
  Receive Date: 20050511
  Receipt Date: 20050429
  Transmission Date: 20051028
  Serious: Yes (Hospitalization)
  Sender: FDA-Public Use
  Company Number: ES-BRISTOL-MYERS SQUIBB COMPANY-12951463

PATIENT
  Age: 62 Year
  Sex: Male

DRUGS (2)
  1. TAXOL [Suspect]
     Indication: LUNG ADENOCARCINOMA
     Route: 042
     Dates: end: 20050322
  2. OXALIPLATIN [Suspect]
     Indication: LUNG ADENOCARCINOMA
     Route: 042
     Dates: end: 20050322

REACTIONS (6)
  - COUGH [None]
  - DYSPNOEA [None]
  - NEUTROPENIA [None]
  - PYREXIA [None]
  - SPUTUM DISCOLOURED [None]
  - STOMATITIS [None]
